FAERS Safety Report 13384907 (Version 16)
Quarter: 2020Q4

REPORT INFORMATION
  Report Type: Spontaneous
  Country: US (occurrence: US)
  Receive Date: 20170329
  Receipt Date: 20201209
  Transmission Date: 20210113
  Serious: No
  Sender: FDA-Public Use
  Company Number: US-PFIZER INC-2017132920

PATIENT
  Age: 79 Year
  Sex: Female
  Weight: 91 kg

DRUGS (29)
  1. LYRICA [Suspect]
     Active Substance: PREGABALIN
     Indication: NEUROPATHY PERIPHERAL
     Dosage: 75 MG, 1X/DAY, (ONCE AT NIGHT 25 + 50 MG)
     Dates: start: 2016
  2. LYRICA [Suspect]
     Active Substance: PREGABALIN
     Dosage: 75 MG, DAILY (1 CAPSULE EVERY DAY)
     Route: 048
  3. BUDESONIDE. [Concomitant]
     Active Substance: BUDESONIDE
     Dosage: UNK, AS NEEDED (0.25/2 MG/ML)
  4. METOLAZONE. [Concomitant]
     Active Substance: METOLAZONE
     Indication: WEIGHT INCREASED
     Dosage: 2.5 MG, AS NEEDED
     Route: 048
  5. SPIRONOLACTONE. [Concomitant]
     Active Substance: SPIRONOLACTONE
     Dosage: 25 MG, DAILY
     Route: 048
  6. LYRICA [Suspect]
     Active Substance: PREGABALIN
     Dosage: 125 MG, 1X/DAY (75MG AND 50MG CAPSULES )
  7. COUMADIN [Concomitant]
     Active Substance: WARFARIN SODIUM
     Dosage: 5 MG, DAILY
     Route: 048
  8. COLCHICINE. [Concomitant]
     Active Substance: COLCHICINE
     Indication: GOUT
     Dosage: 0.6 MG, AS NEEDED
  9. COUMADIN [Concomitant]
     Active Substance: WARFARIN SODIUM
     Dosage: 2.5 MG, UNK (5 MG ON ONLY 1/2 TABLET TUE-SUN)
  10. LASIX [Concomitant]
     Active Substance: FUROSEMIDE
     Dosage: 40 MG, DAILY
  11. NOVOLOG [Concomitant]
     Active Substance: INSULIN ASPART
     Dosage: UNK
     Route: 058
  12. PROAIR HFA [Concomitant]
     Active Substance: ALBUTEROL SULFATE
     Dosage: UNK, AS NEEDED, (90 MCG/ACTUATION AEROSOL INHALER)
     Route: 055
  13. SIMVASTATIN. [Concomitant]
     Active Substance: SIMVASTATIN
     Dosage: 25 MG, UNK
  14. SOTALOL. [Concomitant]
     Active Substance: SOTALOL
     Dosage: 120 MG, 2X/DAY, (80 MG TABLET, 1.5 TWICE DAILY )
     Route: 048
     Dates: start: 2016
  15. VALIUM [Concomitant]
     Active Substance: DIAZEPAM
     Dosage: 5 MG, DAILY
     Route: 048
  16. BREO ELLIPTA [Concomitant]
     Active Substance: FLUTICASONE FUROATE\VILANTEROL TRIFENATATE
     Indication: CHRONIC OBSTRUCTIVE PULMONARY DISEASE
     Dosage: UNK INHALE
  17. LYRICA [Suspect]
     Active Substance: PREGABALIN
     Dosage: 75 MG, 1X/DAY (AT NIGHT)
     Route: 048
  18. LYRICA [Suspect]
     Active Substance: PREGABALIN
     Dosage: 50 MG, DAILY, (EXTERNALLY MONITORED, EVENING)
     Route: 048
  19. DOXYCYCLINE HYCLATE. [Concomitant]
     Active Substance: DOXYCYCLINE HYCLATE
     Dosage: 100 MG, DAILY
     Route: 048
  20. LOSARTAN. [Concomitant]
     Active Substance: LOSARTAN
     Dosage: 12.5 MG, DAILY, (25 MG, 1/2 TAB)
  21. SIMETHICONE (DIMETHICONE) [Concomitant]
     Active Substance: DIMETHICONE
     Dosage: 180 MG, AS NEEDED
  22. NOVOLIN N [Concomitant]
     Active Substance: INSULIN HUMAN
     Dosage: 40 IU, UNK, (BED ONLY)
     Route: 058
  23. PERFOROMIST [Concomitant]
     Active Substance: FORMOTEROL FUMARATE DIHYDRATE
     Dosage: AS NEEDED (20/2 MICROG/ML)
  24. SIMVASTATIN. [Concomitant]
     Active Substance: SIMVASTATIN
     Dosage: 20 MG, DAILY
     Route: 048
  25. LYRICA [Suspect]
     Active Substance: PREGABALIN
     Indication: NEURALGIA
     Dosage: 50 MG, 1X/DAY
     Route: 048
  26. BREO ELLIPTA [Concomitant]
     Active Substance: FLUTICASONE FUROATE\VILANTEROL TRIFENATATE
     Indication: LUNG DISORDER
  27. LYRICA [Suspect]
     Active Substance: PREGABALIN
     Dosage: 75 MG, 1X/DAY (1 IN THE EVENING)
  28. LYRICA [Suspect]
     Active Substance: PREGABALIN
     Dosage: 225 MG, 1X/DAY, (150 MG AND 75 MG ONCE A DAY)
  29. LYRICA [Suspect]
     Active Substance: PREGABALIN
     Dosage: 175 MG, DAILY (50 MG 2X/DAY IN THE MORNING AND 75 MG 1X/DAY IN THE EVENING)
     Route: 048

REACTIONS (8)
  - Therapeutic product effect incomplete [Unknown]
  - Pain in extremity [Recovered/Resolved]
  - Aphasia [Unknown]
  - Oropharyngeal pain [Recovered/Resolved]
  - Nasopharyngitis [Recovering/Resolving]
  - Confusional state [Unknown]
  - Arthralgia [Unknown]
  - Dry eye [Unknown]

NARRATIVE: CASE EVENT DATE: 201705
